FAERS Safety Report 18436429 (Version 1)
Quarter: 2020Q4

REPORT INFORMATION
  Report Type: Spontaneous
  Country: CN (occurrence: CN)
  Receive Date: 20201028
  Receipt Date: 20201028
  Transmission Date: 20210114
  Serious: Yes (Other)
  Sender: FDA-Public Use
  Company Number: CN-PFIZER INC-2020413559

PATIENT
  Age: 24 Year
  Sex: Female

DRUGS (2)
  1. HEMABATE [Suspect]
     Active Substance: CARBOPROST TROMETHAMINE
     Indication: UTERINE CONTRACTIONS ABNORMAL
     Dosage: 250 UG, 1X/DAY
     Route: 030
     Dates: start: 20201022, end: 20201022
  2. OXYTOCIN. [Concomitant]
     Active Substance: OXYTOCIN
     Indication: UTERINE CONTRACTIONS ABNORMAL
     Dosage: 20 IU, 1X/DAY
     Route: 041
     Dates: start: 20201022, end: 20201022

REACTIONS (5)
  - Thirst [Recovered/Resolved]
  - Hypoaesthesia [Recovered/Resolved]
  - Pruritus [Recovered/Resolved]
  - Chest discomfort [Recovered/Resolved]
  - Palpitations [Recovered/Resolved]

NARRATIVE: CASE EVENT DATE: 20201022
